FAERS Safety Report 17434731 (Version 1)
Quarter: 2020Q1

REPORT INFORMATION
  Report Type: Spontaneous
  Country: US (occurrence: US)
  Receive Date: 20200218
  Receipt Date: 20200218
  Transmission Date: 20200409
  Serious: Yes (Disabling)
  Sender: FDA-Public Use
  Company Number: None

PATIENT
  Age: 77 Year
  Sex: Female
  Weight: 70 kg

DRUGS (6)
  1. ZOCOR [Concomitant]
     Active Substance: SIMVASTATIN
     Dates: start: 20180522, end: 20181026
  2. CYTOMEL [Concomitant]
     Active Substance: LIOTHYRONINE SODIUM
     Dates: start: 20030519
  3. PRALUENT [Suspect]
     Active Substance: ALIROCUMAB
     Indication: TYPE IIA HYPERLIPIDAEMIA
     Dosage: ?          OTHER FREQUENCY:EVERY 2 WEEKS;?
     Route: 058
     Dates: start: 20180426, end: 20180621
  4. ASPIRIN. [Concomitant]
     Active Substance: ASPIRIN
     Dates: start: 20180307
  5. METFORMIN [Concomitant]
     Active Substance: METFORMIN HYDROCHLORIDE
     Dates: start: 20160916
  6. ZETIA [Concomitant]
     Active Substance: EZETIMIBE
     Dates: start: 20040406

REACTIONS (4)
  - Memory impairment [None]
  - Dysphonia [None]
  - Weight increased [None]
  - Spasmodic dysphonia [None]

NARRATIVE: CASE EVENT DATE: 20180621
